FAERS Safety Report 9692691 (Version 2)
Quarter: 2013Q4

REPORT INFORMATION
  Report Type: Spontaneous
  Country: IT (occurrence: IT)
  Receive Date: 20131118
  Receipt Date: 20131226
  Transmission Date: 20140711
  Serious: Yes (Other)
  Sender: FDA-Public Use
  Company Number: PHHY2013IT130633

PATIENT
  Age: 32 Year
  Sex: Male

DRUGS (2)
  1. VOLTAREN [Suspect]
     Indication: ABDOMINAL PAIN
     Dosage: 4 DF, TOTAL
     Route: 030
     Dates: start: 20131005, end: 20131006
  2. METHADONE [Concomitant]
     Indication: DETOXIFICATION
     Dosage: UNK UKN, UNK

REACTIONS (2)
  - Rhabdomyolysis [Recovering/Resolving]
  - Blood creatine phosphokinase increased [Unknown]
